FAERS Safety Report 16453887 (Version 1)
Quarter: 2019Q2

REPORT INFORMATION
  Report Type: Spontaneous
  Country: US (occurrence: US)
  Receive Date: 20190620
  Receipt Date: 20190620
  Transmission Date: 20190711
  Serious: No
  Sender: FDA-Public Use
  Company Number: US-009507513-1906USA007041

PATIENT
  Sex: Female
  Weight: 58.96 kg

DRUGS (1)
  1. NUVARING [Suspect]
     Active Substance: ETHINYL ESTRADIOL\ETONOGESTREL
     Dosage: 0.15/0.12, ONE RING EVERY MONTH
     Route: 067

REACTIONS (4)
  - No adverse event [Unknown]
  - Complication associated with device [Unknown]
  - Female condom [Unknown]
  - Product quality issue [Unknown]
